FAERS Safety Report 9330916 (Version 1)
Quarter: 2013Q2

REPORT INFORMATION
  Report Type: Spontaneous
  Country: US (occurrence: US)
  Receive Date: 20130605
  Receipt Date: 20130605
  Transmission Date: 20140414
  Serious: Yes (Other)
  Sender: FDA-Public Use
  Company Number: US-PFIZER INC-2013168748

PATIENT
  Age: 48 Year
  Sex: Male
  Weight: 79.37 kg

DRUGS (2)
  1. ADVIL [Suspect]
     Indication: HEADACHE
     Dosage: EVERY OTHER DAY
     Dates: start: 2008, end: 201304
  2. ZOCOR [Concomitant]
     Indication: BLOOD CHOLESTEROL INCREASED
     Dosage: 40 MG, DAILY

REACTIONS (1)
  - Bladder cancer [Unknown]
